FAERS Safety Report 11577899 (Version 1)
Quarter: 2015Q3

REPORT INFORMATION
  Report Type: Report from Study
  Country: US (occurrence: US)
  Receive Date: 20150930
  Receipt Date: 20150930
  Transmission Date: 20151125
  Serious: Yes (Hospitalization)
  Sender: FDA-Public Use
  Company Number: US-JNJFOC-20150805857

PATIENT
  Sex: Male

DRUGS (19)
  1. DULERA [Concomitant]
     Active Substance: FORMOTEROL FUMARATE DIHYDRATE\MOMETASONE FUROATE
     Dosage: SPRAY AND INHALATION
     Dates: start: 20150216
  2. SULFAMETHOXAZOLE-TRIMETHOPRIM (SMZ) [Concomitant]
     Active Substance: SULFAMETHOXAZOLE\TRIMETHOPRIM
     Dosage: 1 INHALATION
     Route: 048
     Dates: start: 20141117
  3. ALBUTEROL SULFATE. [Concomitant]
     Active Substance: ALBUTEROL SULFATE
     Dosage: 2.5MG/3 ML(0.083%)SOLUTION FOR NEBULIZATION.
     Dates: start: 20150119
  4. ELIQUIS [Concomitant]
     Active Substance: APIXABAN
     Dates: start: 20150831
  5. GENTAMICIN. [Concomitant]
     Active Substance: GENTAMICIN
     Dosage: EYE DROPS
     Dates: start: 20141124
  6. METOPROLOL [Concomitant]
     Active Substance: METOPROLOL
     Dates: start: 20150831
  7. SPIRIVA [Concomitant]
     Active Substance: TIOTROPIUM BROMIDE MONOHYDRATE
     Dosage: 1 INHALATION
     Route: 048
     Dates: start: 20150708
  8. FLORASTOR [Concomitant]
     Active Substance: SACCHAROMYCES CEREVISIAE
     Dates: start: 20120124
  9. HYDROMET (HYDROCODONE BITARTRATE AND HOMATROPINE METHYLBROMIDE) [Concomitant]
     Dates: start: 20150518
  10. PULMICORT TURBUHALER [Concomitant]
     Active Substance: BUDESONIDE
     Dosage: 0.25MG/2ML NEB SUSPENSION
     Dates: start: 20150124
  11. SINGULAIR [Concomitant]
     Active Substance: MONTELUKAST SODIUM
  12. VIAGRA [Concomitant]
     Active Substance: SILDENAFIL CITRATE
     Dates: start: 20120124
  13. IMBRUVICA [Suspect]
     Active Substance: IBRUTINIB
     Indication: CHRONIC LYMPHOCYTIC LEUKAEMIA
     Route: 048
     Dates: start: 20140901, end: 2015
  14. AZITHROMYCIN [Concomitant]
     Active Substance: AZITHROMYCIN ANHYDROUS
     Dosage: 2.5MG/3 ML(0.083%)SOLUTION FOR NEBULIZATION
     Dates: start: 20140609
  15. CENTRUM NOS [Concomitant]
     Dates: start: 20120124
  16. SAW PALMETTO [Concomitant]
     Active Substance: SAW PALMETTO
     Dates: start: 20150124
  17. CARTIA XT [Concomitant]
     Active Substance: DILTIAZEM HYDROCHLORIDE
     Dosage: EXTENDED RELEASE CAPSULE
     Dates: start: 20150831
  18. LOSARTAN. [Concomitant]
     Active Substance: LOSARTAN
     Dates: start: 20130506
  19. VERAMYST [Concomitant]
     Active Substance: FLUTICASONE FUROATE
     Dosage: NASAL SPRAY TOO
     Route: 045
     Dates: start: 20120124

REACTIONS (3)
  - Atrial fibrillation [Unknown]
  - Pleural effusion [Recovered/Resolved]
  - Dyspnoea [Unknown]

NARRATIVE: CASE EVENT DATE: 2015
